FAERS Safety Report 10413441 (Version 2)
Quarter: 2014Q4

REPORT INFORMATION
  Report Type: Spontaneous
  Country: ES (occurrence: ES)
  Receive Date: 20140827
  Receipt Date: 20141030
  Transmission Date: 20150528
  Serious: Yes (Other)
  Sender: FDA-Public Use
  Company Number: ES-GLAXOSMITHKLINE-B1027469A

PATIENT
  Age: 48 Year
  Sex: Male

DRUGS (10)
  1. AERO-RED [Concomitant]
  2. GABAPENTIN. [Concomitant]
     Active Substance: GABAPENTIN
  3. CLEXANE [Concomitant]
     Active Substance: ENOXAPARIN SODIUM
  4. TAZOCEL [Concomitant]
     Active Substance: PIPERACILLIN SODIUM\TAZOBACTAM SODIUM
  5. MICRALAX [Concomitant]
  6. REVOLADE [Suspect]
     Active Substance: ELTROMBOPAG
     Indication: IMMUNE THROMBOCYTOPENIC PURPURA
     Dosage: 50 MG, QD
     Route: 048
     Dates: start: 20140703, end: 20140803
  7. ADOLONTA [Concomitant]
     Active Substance: TRAMADOL HYDROCHLORIDE
  8. ORFIDAL [Concomitant]
     Active Substance: LORAZEPAM
  9. PARACETAMOL [Concomitant]
     Active Substance: ACETAMINOPHEN
  10. TEICOPLANIN [Concomitant]
     Active Substance: TEICOPLANIN

REACTIONS (1)
  - Intestinal ischaemia [Recovered/Resolved]
